FAERS Safety Report 10015269 (Version 1)
Quarter: 2014Q1

REPORT INFORMATION
  Report Type: Spontaneous
  Country: US (occurrence: US)
  Receive Date: 20140317
  Receipt Date: 20140317
  Transmission Date: 20141002
  Serious: No
  Sender: FDA-Public Use
  Company Number: US-PFIZER INC-2014074070

PATIENT
  Age: 61 Year
  Sex: Female
  Weight: 74.83 kg

DRUGS (6)
  1. XELJANZ [Suspect]
     Indication: RHEUMATOID ARTHRITIS
     Dosage: 5 MG, 2X/DAY
     Route: 048
     Dates: start: 201402
  2. FETZIMA [Concomitant]
     Dosage: UNK
  3. HYDROXYCHLOROQUINE SULFATE [Concomitant]
     Dosage: UNK
  4. ZOLPIDEM TARTRATE [Concomitant]
     Dosage: UNK
  5. SAVELLA [Concomitant]
     Dosage: UNK
  6. HYDROCODONE W/ACETAMINOPHEN [Concomitant]
     Dosage: UNK

REACTIONS (4)
  - Dizziness [Unknown]
  - Headache [Unknown]
  - Weight increased [Unknown]
  - Abdominal distension [Unknown]
